FAERS Safety Report 9528234 (Version 1)
Quarter: 2013Q3

REPORT INFORMATION
  Report Type: Spontaneous
  Country: IT (occurrence: IT)
  Receive Date: 20130917
  Receipt Date: 20130917
  Transmission Date: 20140515
  Serious: Yes (Death)
  Sender: FDA-Public Use
  Company Number: PHHY2013IT101535

PATIENT
  Sex: 0

DRUGS (2)
  1. EVEROLIMUS [Suspect]
     Indication: B-CELL LYMPHOMA
     Dosage: 10 MG, DAILY
     Route: 048
  2. EVEROLIMUS [Suspect]
     Indication: OFF LABEL USE

REACTIONS (1)
  - Toxicity to various agents [Fatal]
